FAERS Safety Report 18796341 (Version 2)
Quarter: 2021Q1

REPORT INFORMATION
  Report Type: Spontaneous
  Country: US (occurrence: US)
  Receive Date: 20210127
  Receipt Date: 20210305
  Transmission Date: 20210419
  Serious: No
  Sender: FDA-Public Use
  Company Number: US-BRISTOL-MYERS SQUIBB COMPANY-BMS-2021-007927

PATIENT
  Age: 30 Year
  Sex: Female

DRUGS (2)
  1. KENALOG?10 [Suspect]
     Active Substance: TRIAMCINOLONE ACETONIDE
     Dosage: 1.5 MG/ML
     Route: 065
     Dates: start: 20210120, end: 20210120
  2. KENALOG?10 [Suspect]
     Active Substance: TRIAMCINOLONE ACETONIDE
     Indication: PRODUCT USED FOR UNKNOWN INDICATION
     Dosage: 0.1 CC OF 1.5 MG KENALOG?10
     Route: 065
     Dates: start: 20210120

REACTIONS (1)
  - Injection site pain [Recovered/Resolved]

NARRATIVE: CASE EVENT DATE: 20210120
